FAERS Safety Report 20768155 (Version 1)
Quarter: 2022Q2

REPORT INFORMATION
  Report Type: Spontaneous
  Country: US (occurrence: US)
  Receive Date: 20220429
  Receipt Date: 20220429
  Transmission Date: 20220721
  Serious: Yes (Other)
  Sender: FDA-Public Use
  Company Number: US-JNJFOC-20220451269

PATIENT

DRUGS (1)
  1. REMICADE [Suspect]
     Active Substance: INFLIXIMAB
     Indication: Inflammatory bowel disease
     Route: 064
     Dates: start: 20081216, end: 20180227

REACTIONS (2)
  - Neonatal tachycardia [Unknown]
  - Foetal exposure during pregnancy [Recovered/Resolved]
